FAERS Safety Report 6246750-6 (Version None)
Quarter: 2009Q2

REPORT INFORMATION
  Report Type: 
  Country: None (occurrence: None)
  Receive Date: 20090626
  Receipt Date: 20090617
  Transmission Date: 20091009
  Serious: Yes (Other)
  Sender: FDA-Public Use
  Company Number: GB-PFIZER INC-2009228246

PATIENT
  Age: 70 Year

DRUGS (1)
  1. SUTENT [Suspect]

REACTIONS (2)
  - INTRA-ABDOMINAL HAEMATOMA [None]
  - INTRA-ABDOMINAL HAEMORRHAGE [None]
